FAERS Safety Report 4809945-1 (Version None)
Quarter: 2005Q4

REPORT INFORMATION
  Report Type: 
  Country: None (occurrence: None)
  Receive Date: 20051026
  Receipt Date: 20051020
  Transmission Date: 20060501
  Serious: Yes (Hospitalization)
  Sender: FDA-Public Use
  Company Number: DE-JNJFOC-20051004631

PATIENT
  Sex: Male

DRUGS (2)
  1. DURAGESIC-100 [Suspect]
     Indication: PAIN
     Route: 062
  2. SEVREDOL [Suspect]
     Indication: PAIN
     Route: 065

REACTIONS (2)
  - ROAD TRAFFIC ACCIDENT [None]
  - SUICIDE ATTEMPT [None]
